FAERS Safety Report 5764482-5 (Version None)
Quarter: 2008Q2

REPORT INFORMATION
  Report Type: 
  Country: None (occurrence: None)
  Receive Date: 20080610
  Receipt Date: 20080530
  Transmission Date: 20081010
  Serious: Yes (Hospitalization)
  Sender: FDA-Public Use
  Company Number: US-PFIZER INC-2008046365

PATIENT
  Age: 86 Year
  Sex: Female

DRUGS (5)
  1. DETROL [Suspect]
  2. HYDROCHLOROTHIAZIDE [Concomitant]
  3. LISINOPRIL [Concomitant]
  4. MIRTAZAPINE [Concomitant]
  5. OMEPRAZOLE [Concomitant]

REACTIONS (2)
  - HYPONATRAEMIA [None]
  - UNRESPONSIVE TO STIMULI [None]
